FAERS Safety Report 5262213-9 (Version None)
Quarter: 2007Q1

REPORT INFORMATION
  Report Type: 
  Country: None (occurrence: None)
  Receive Date: 20070312
  Receipt Date: 20070226
  Transmission Date: 20070707
  Serious: Yes (Other)
  Sender: FDA-Public Use
  Company Number: PHEH2007US01672

PATIENT
  Age: 66 Year
  Sex: Male

DRUGS (19)
  1. EXJADE [Suspect]
     Indication: IRON OVERLOAD
     Dosage: 2500 MG, QD
     Route: 048
     Dates: start: 20060304, end: 20060810
  2. DESFERAL [Suspect]
     Dosage: 2-3 UNITS/WEEK, PRN
     Route: 042
     Dates: start: 20060711
  3. ENOXAPARIN SODIUM [Concomitant]
  4. WARFARIN SODIUM [Concomitant]
  5. LOSARTAN POSTASSIUM [Concomitant]
  6. DIGOXIN [Concomitant]
  7. DOFETILIDE [Concomitant]
  8. DUTASTERIDE [Concomitant]
  9. ASCORBIC ACID [Concomitant]
  10. GLIMEPIRIDE [Concomitant]
  11. METOCLOPRAMIDE [Concomitant]
  12. ONDANSETRON [Concomitant]
  13. FUROSEMIDE [Concomitant]
  14. METOLAZONE [Concomitant]
  15. SPIRONOLACTONE [Concomitant]
  16. POTASSIUM CHLORIDE [Concomitant]
  17. EPOETIN BETA [Concomitant]
  18. MAGNESIUM [Concomitant]
  19. INSULIN [Concomitant]

REACTIONS (20)
  - ALANINE AMINOTRANSFERASE INCREASED [None]
  - ASPARTATE AMINOTRANSFERASE INCREASED [None]
  - ASPIRATION BONE MARROW [None]
  - BIOPSY BONE MARROW ABNORMAL [None]
  - BLOOD BILIRUBIN INCREASED [None]
  - BLOOD CREATININE INCREASED [None]
  - BLOOD GLUCOSE INCREASED [None]
  - BLOOD IRON INCREASED [None]
  - BLOOD SODIUM DECREASED [None]
  - HAEMATOCRIT DECREASED [None]
  - HAEMOGLOBIN DECREASED [None]
  - LEUKOPENIA [None]
  - LIVER FUNCTION TEST ABNORMAL [None]
  - MARROW HYPERPLASIA [None]
  - MYELODYSPLASTIC SYNDROME [None]
  - NORMOCHROMIC NORMOCYTIC ANAEMIA [None]
  - PANCYTOPENIA [None]
  - PLATELET COUNT DECREASED [None]
  - RED BLOOD CELL COUNT DECREASED [None]
  - WHITE BLOOD CELL COUNT DECREASED [None]
